FAERS Safety Report 19942373 (Version 1)
Quarter: 2021Q4

REPORT INFORMATION
  Report Type: Spontaneous
  Country: US (occurrence: US)
  Receive Date: 20211011
  Receipt Date: 20211011
  Transmission Date: 20220303
  Serious: Yes (Death)
  Sender: FDA-Public Use
  Company Number: None

PATIENT
  Age: 56 Year
  Sex: Male
  Weight: 65.25 kg

DRUGS (19)
  1. CAPECITABINE [Suspect]
     Active Substance: CAPECITABINE
     Indication: Colon cancer
     Dosage: ?          OTHER FREQUENCY:BIDX14 DAYS, 7OFF;
     Route: 048
     Dates: start: 20210801, end: 20210926
  2. AVASTIN [Concomitant]
     Active Substance: BEVACIZUMAB
  3. DEXAMETHASONE [Concomitant]
     Active Substance: DEXAMETHASONE
  4. DIPHENHYDRAMINE 12.5MG [Concomitant]
  5. LIDOCAINE-PRILOCAINE 2.5-2.5% [Concomitant]
  6. FAMOTIDINE 20MG/2ML [Concomitant]
  7. FERGON 240MG [Concomitant]
  8. FLUOROURACIL [Concomitant]
     Active Substance: FLUOROURACIL
  9. GABAPENTIN [Concomitant]
     Active Substance: GABAPENTIN
  10. HUMALOG [Concomitant]
     Active Substance: INSULIN LISPRO
  11. LEUCOVORIN [Concomitant]
     Active Substance: LEUCOVORIN
  12. METFORMIN HYDROCHLORIDE [Concomitant]
     Active Substance: METFORMIN HYDROCHLORIDE
  13. MS CONTIN 30MG [Concomitant]
  14. NORVASC [Concomitant]
     Active Substance: AMLODIPINE BESYLATE
  15. OXYCODONE [Concomitant]
     Active Substance: OXYCODONE
  16. PALONOSETRON 0.25MG/2ML [Concomitant]
  17. POTASSIUM CHLORIDE [Concomitant]
     Active Substance: POTASSIUM CHLORIDE
  18. PREDNISONE [Concomitant]
     Active Substance: PREDNISONE
  19. SODIUM CHLORIDE FLUSH 0.9% [Concomitant]

REACTIONS (1)
  - Death [None]

NARRATIVE: CASE EVENT DATE: 20210926
